FAERS Safety Report 8438738-1 (Version None)
Quarter: 2012Q2

REPORT INFORMATION
  Report Type: 
  Country: None (occurrence: None)
  Receive Date: 20120611
  Receipt Date: 20120611
  Transmission Date: 20120825
  Serious: Yes (Life-Threatening, Hospitalization, Disabling, Other)
  Sender: FDA-Public Use
  Company Number: None

PATIENT
  Age: 71 Year
  Sex: Female
  Weight: 57.6068 kg

DRUGS (4)
  1. LUNESTA [Suspect]
     Indication: ANXIETY
     Dosage: 2 TABLETS BY MOUTH AT NIGHT
     Route: 048
     Dates: start: 20120101, end: 20120101
  2. LUNESTA [Suspect]
     Indication: INSOMNIA
     Dosage: 2 TABLETS BY MOUTH AT NIGHT
     Route: 048
     Dates: start: 20120101, end: 20120101
  3. CYMBALTA [Suspect]
     Indication: INSOMNIA
     Dosage: 1 CAPSULE AT NIGHT
     Dates: start: 20120101, end: 20120101
  4. CYMBALTA [Suspect]
     Indication: ANXIETY
     Dosage: 1 CAPSULE AT NIGHT
     Dates: start: 20120101, end: 20120101

REACTIONS (14)
  - VISION BLURRED [None]
  - HALLUCINATION [None]
  - VISUAL IMPAIRMENT [None]
  - HEART RATE INCREASED [None]
  - CONFUSIONAL STATE [None]
  - DISORIENTATION [None]
  - EMOTIONAL DISTRESS [None]
  - WEIGHT DECREASED [None]
  - DYSPNOEA [None]
  - SLEEP APNOEA SYNDROME [None]
  - GRAND MAL CONVULSION [None]
  - DRUG HYPERSENSITIVITY [None]
  - ACTIVITIES OF DAILY LIVING IMPAIRED [None]
  - AMNESIA [None]
